FAERS Safety Report 9635675 (Version 1)
Quarter: 2013Q4

REPORT INFORMATION
  Report Type: Spontaneous
  Country: US (occurrence: US)
  Receive Date: 20131021
  Receipt Date: 20131021
  Transmission Date: 20140711
  Serious: No
  Sender: FDA-Public Use
  Company Number: US-B.I. PHARMACEUTICALS,INC./RIDGEFIELD-2013-BI-31848BP

PATIENT
  Age: 73 Year
  Sex: Female
  Weight: 55 kg

DRUGS (2)
  1. SPIRIVA [Suspect]
     Indication: CHRONIC OBSTRUCTIVE PULMONARY DISEASE
     Dosage: 18 MCG
     Route: 055
     Dates: start: 20130916
  2. HALAVEN [Concomitant]
     Indication: BREAST CANCER METASTATIC
     Dosage: FORMULATION: INTRAVENOUS
     Route: 048

REACTIONS (3)
  - Lung infection [Not Recovered/Not Resolved]
  - Cystitis [Not Recovered/Not Resolved]
  - Accidental overdose [Recovered/Resolved]
